FAERS Safety Report 6183255-5 (Version None)
Quarter: 2009Q2

REPORT INFORMATION
  Report Type: 
  Country: None (occurrence: None)
  Receive Date: 20090507
  Receipt Date: 20090428
  Transmission Date: 20091009
  Serious: Yes (Hospitalization)
  Sender: FDA-Public Use
  Company Number: CH-AMGEN-UK341766

PATIENT
  Age: 73 Year
  Sex: Male

DRUGS (1)
  1. MIMPARA [Suspect]
     Indication: HYPERPARATHYROIDISM PRIMARY
     Route: 065
     Dates: end: 20070404

REACTIONS (3)
  - ABDOMINAL PAIN [None]
  - NAUSEA [None]
  - PARATHYROIDECTOMY [None]
